FAERS Safety Report 5067158-5 (Version None)
Quarter: 2006Q3

REPORT INFORMATION
  Report Type: 
  Country: None (occurrence: None)
  Receive Date: 20060801
  Receipt Date: 20060712
  Transmission Date: 20061208
  Serious: Yes (Hospitalization)
  Sender: FDA-Public Use
  Company Number: GB-BOEHRINGER INGELHEIM PHARMACEUTICALS, INC.-2006-UK-03182UK

PATIENT
  Age: 69 Year
  Sex: Female

DRUGS (8)
  1. DIPYRIDAMOLE [Suspect]
     Indication: CEREBROVASCULAR ACCIDENT
     Dosage: 2/1 DAYS
     Route: 048
     Dates: end: 20060529
  2. ASPIRIN [Suspect]
     Indication: CEREBROVASCULAR ACCIDENT
     Dosage: 1/1 DAYS
     Route: 048
     Dates: end: 20060529
  3. BENDROFLUMETHIAZIDE [Concomitant]
     Indication: BLOOD PRESSURE INCREASED
     Dosage: 1/1 DAYS
     Route: 048
  4. HUMULIN M3 [Concomitant]
     Indication: DIABETES MELLITUS
     Dosage: 2/1 DAYS
     Route: 058
  5. PERINDOPRIL [Concomitant]
     Indication: BLOOD PRESSURE INCREASED
     Dosage: 1/1 DAYS
  6. QUININE SULFATE [Concomitant]
     Indication: MUSCLE SPASMS
     Dosage: 1/1 DAYS
     Route: 048
  7. SIMVASTATIN [Concomitant]
     Indication: BLOOD CHOLESTEROL
     Dosage: 1/1 DAYS
     Route: 048
  8. MULTI-VITAMIN PREPERATION [Concomitant]
     Dosage: 1 DAY FEQUENTLY

REACTIONS (7)
  - ASTHENIA [None]
  - BLOOD UREA INCREASED [None]
  - DIZZINESS [None]
  - GASTRIC ULCER [None]
  - HAEMOGLOBIN DECREASED [None]
  - LETHARGY [None]
  - VOMITING [None]
